FAERS Safety Report 5725262-X (Version None)
Quarter: 2008Q2

REPORT INFORMATION
  Report Type: 
  Country: None (occurrence: None)
  Receive Date: 20080501
  Receipt Date: 20080423
  Transmission Date: 20081010
  Serious: Yes (Other)
  Sender: FDA-Public Use
  Company Number: BE-ASTRAZENECA-2008AC01068

PATIENT
  Sex: Female

DRUGS (1)
  1. LOSEC I.V. [Suspect]
     Route: 065

REACTIONS (3)
  - BLOOD CHROMOGRANIN A INCREASED [None]
  - CARCINOEMBRYONIC ANTIGEN INCREASED [None]
  - DRUG INTERACTION [None]
